FAERS Safety Report 11094648 (Version 4)
Quarter: 2016Q2

REPORT INFORMATION
  Report Type: Spontaneous
  Country: US (occurrence: US)
  Receive Date: 20150506
  Receipt Date: 20160609
  Transmission Date: 20160815
  Serious: Yes (Other)
  Sender: FDA-Public Use
  Company Number: US-PFIZER INC-2015137538

PATIENT
  Sex: Female

DRUGS (5)
  1. NICODERM CQ [Concomitant]
     Active Substance: NICOTINE
     Dosage: 1 QD 6 WKS, THEN 14MG PATCH QD X 4 WKS THEN 7 MG PATCH QD X 4 WKS
  2. LYRICA [Suspect]
     Active Substance: PREGABALIN
     Dosage: UNK
  3. CELEBREX [Concomitant]
     Active Substance: CELECOXIB
     Dosage: 200 MG, 1X/DAY
     Route: 048
  4. RELPAX [Concomitant]
     Active Substance: ELETRIPTAN HYDROBROMIDE
     Dosage: UNK
  5. PRISTIQ EXTENDED-RELEASE [Concomitant]
     Active Substance: DESVENLAFAXINE SUCCINATE
     Dosage: UNK

REACTIONS (4)
  - Diarrhoea [Unknown]
  - Intentional product misuse [Unknown]
  - Cataract [Unknown]
  - Ocular discomfort [Unknown]
